FAERS Safety Report 5114711-6 (Version None)
Quarter: 2006Q3

REPORT INFORMATION
  Report Type: 
  Country: None (occurrence: None)
  Receive Date: 20060921
  Receipt Date: 20060904
  Transmission Date: 20061208
  Serious: Yes (Hospitalization)
  Sender: FDA-Public Use
  Company Number: S06-GER-03562-01

PATIENT
  Age: 60 Year
  Sex: Male
  Weight: 80 kg

DRUGS (3)
  1. ESCITALOPRAM [Suspect]
     Indication: DEPRESSION
     Dosage: 10 MG QD PO
     Route: 048
     Dates: start: 20051201
  2. ESCITALOPRAM [Suspect]
     Indication: DISEASE RECURRENCE
     Dosage: 10 MG QD PO
     Route: 048
     Dates: start: 20051201
  3. MIRTAZAPINE [Concomitant]

REACTIONS (1)
  - URINARY RETENTION [None]
